FAERS Safety Report 9946301 (Version 3)
Quarter: 2014Q1

REPORT INFORMATION
  Report Type: Spontaneous
  Country: IT (occurrence: IT)
  Receive Date: 20140303
  Receipt Date: 20140326
  Transmission Date: 20141002
  Serious: Yes (Hospitalization)
  Sender: FDA-Public Use
  Company Number: PHHY2014IT025120

PATIENT
  Age: 86 Year
  Sex: Female

DRUGS (8)
  1. TEGRETOL [Suspect]
     Indication: SEDATION
     Dosage: 800 MG, DAILY
     Dates: start: 20140122, end: 20140124
  2. TEGRETOL [Suspect]
     Indication: OFF LABEL USE
     Dosage: 500 MG, DAILY
  3. GABAPENTIN [Suspect]
     Indication: SEDATION
     Dosage: 900 MG, DAILY
     Dates: start: 20140122, end: 20140124
  4. GABAPENTIN [Suspect]
     Indication: OFF LABEL USE
  5. SEROQUEL [Suspect]
     Indication: SEDATION
     Dosage: 50 MG, DAILY
     Dates: start: 20140122, end: 20140124
  6. SEROQUEL [Suspect]
     Indication: OFF LABEL USE
  7. ACETYLSALICYLIC ACID [Concomitant]
     Indication: ATRIAL FIBRILLATION
     Dosage: 100 MG, UNK
     Route: 048
  8. PLAVIX [Concomitant]
     Indication: ATRIAL FIBRILLATION
     Dosage: 75 MG, UNK
     Route: 048

REACTIONS (3)
  - Sopor [Recovering/Resolving]
  - Altered state of consciousness [Recovering/Resolving]
  - Off label use [Recovering/Resolving]
